FAERS Safety Report 6905937-7 (Version None)
Quarter: 2010Q3

REPORT INFORMATION
  Report Type: 
  Country: None (occurrence: None)
  Receive Date: 20100804
  Receipt Date: 20100723
  Transmission Date: 20110219
  Serious: Yes (Hospitalization)
  Sender: FDA-Public Use
  Company Number: FR-GENENTECH-303085

PATIENT
  Sex: Female

DRUGS (1)
  1. LUCENTIS [Suspect]
     Indication: MACULAR DEGENERATION
     Dosage: UNK
     Route: 031
     Dates: start: 20090301

REACTIONS (4)
  - ACUTE RESPIRATORY FAILURE [None]
  - EJECTION FRACTION DECREASED [None]
  - EYE INFLAMMATION [None]
  - EYELID OEDEMA [None]
